FAERS Safety Report 4640691-3 (Version None)
Quarter: 2005Q2

REPORT INFORMATION
  Report Type: 
  Country: None (occurrence: None)
  Receive Date: 20050419
  Receipt Date: 20050406
  Transmission Date: 20051028
  Serious: Yes (Hospitalization)
  Sender: FDA-Public Use
  Company Number: 2005056418

PATIENT
  Age: 66 Year
  Sex: Female
  Weight: 78 kg

DRUGS (6)
  1. DOXORUBICIN HYDROCHLORIDE [Suspect]
     Indication: SARCOMA UTERUS
     Dosage: (135 MG, CYCLICAL), INTRAVENOUS
     Route: 042
     Dates: start: 20050221
  2. RAMIPRIL [Concomitant]
  3. METFORMIN HCL [Concomitant]
  4. ISOSORBIDE MONONITRATE [Concomitant]
  5. ASPIRIN [Concomitant]
  6. LANSOPRAZOLE [Concomitant]

REACTIONS (6)
  - CANDIDIASIS [None]
  - MUCOSAL ULCERATION [None]
  - NEUTROPENIA [None]
  - OESOPHAGITIS [None]
  - ORAL MUCOSAL BLISTERING [None]
  - VAGINAL ULCERATION [None]
